FAERS Safety Report 7304381-0 (Version None)
Quarter: 2011Q1

REPORT INFORMATION
  Report Type: 
  Country: None (occurrence: None)
  Receive Date: 20110221
  Receipt Date: 20110216
  Transmission Date: 20110831
  Serious: Yes (Other)
  Sender: FDA-Public Use
  Company Number: US-AMGEN-US344353

PATIENT
  Age: 76 Year
  Sex: Female

DRUGS (2)
  1. NPLATE [Suspect]
     Indication: IDIOPATHIC THROMBOCYTOPENIC PURPURA
     Dosage: UNK UNK, UNK
     Dates: start: 20081028, end: 20081209
  2. NPLATE [Suspect]
     Dates: start: 20081028, end: 20081209

REACTIONS (3)
  - THROMBOCYTOPENIA [None]
  - ARTHRALGIA [None]
  - PYREXIA [None]
